FAERS Safety Report 6781100-8 (Version None)
Quarter: 2010Q2

REPORT INFORMATION
  Report Type: 
  Country: None (occurrence: None)
  Receive Date: 20100617
  Receipt Date: 20100617
  Transmission Date: 20101027
  Serious: Yes (Hospitalization)
  Sender: FDA-Public Use
  Company Number: None

PATIENT
  Age: 89 Year
  Sex: Male
  Weight: 80.3 kg

DRUGS (1)
  1. FUROSEMIDE [Suspect]
     Indication: CARDIAC FAILURE CONGESTIVE
     Dosage: 20 MG EVERY DAY PO
     Route: 048
     Dates: start: 20020807, end: 20100614

REACTIONS (2)
  - FLUID INTAKE REDUCED [None]
  - RENAL FAILURE ACUTE [None]
